FAERS Safety Report 25811790 (Version 1)
Quarter: 2025Q3

REPORT INFORMATION
  Report Type: Spontaneous
  Country: US (occurrence: None)
  Receive Date: 20250916
  Receipt Date: 20250916
  Transmission Date: 20251021
  Serious: No
  Sender: FDA-CTU
  Company Number: None

PATIENT
  Age: 84 Year
  Sex: Male

DRUGS (9)
  1. CAPECITABINE [Suspect]
     Active Substance: CAPECITABINE
     Indication: Rectal cancer
     Dosage: 300 MG BID ORAL
     Route: 048
     Dates: start: 20250822, end: 20250910
  2. CAPECITABINE [Suspect]
     Active Substance: CAPECITABINE
     Indication: Rectal cancer
     Dosage: 1500 MG BID ORAL ?
     Route: 048
     Dates: start: 20250822, end: 20250910
  3. VIAGRA 100MG TABS [Concomitant]
  4. CARBIDOPA/LEVODOPA 1-100MG TABS [Concomitant]
  5. DAILY-VITE TABS [Concomitant]
  6. EMLA [Concomitant]
     Active Substance: LIDOCAINE\PRILOCAINE
  7. MIRTAZAPINE 7.5MG TABS [Concomitant]
  8. VITAMIN B12 200MCG ER TABS [Concomitant]
  9. VITAMIN D3 1000UNIT TABS [Concomitant]

REACTIONS (1)
  - Gastrointestinal infection [None]

NARRATIVE: CASE EVENT DATE: 20250910
